FAERS Safety Report 12987372 (Version 1)
Quarter: 2016Q4

REPORT INFORMATION
  Report Type: Spontaneous
  Country: FR (occurrence: FR)
  Receive Date: 20161130
  Receipt Date: 20161130
  Transmission Date: 20170207
  Serious: Yes (Hospitalization, Other)
  Sender: FDA-Public Use
  Company Number: FR-INDIVIOR LIMITED-INDV-096804-2016

PATIENT
  Age: 34 Year
  Sex: Male

DRUGS (2)
  1. SUBUTEX [Suspect]
     Active Substance: BUPRENORPHINE HYDROCHLORIDE
     Indication: SUICIDE ATTEMPT
     Dosage: 49 TABLETS OF 8MG EACH, ONE SINGLE INTAKE
     Route: 048
     Dates: start: 20160601, end: 20160601
  2. VALIUM [Suspect]
     Active Substance: DIAZEPAM
     Indication: SUICIDE ATTEMPT
     Dosage: 90 TABLETS OF 10MG EACH , ONE SINGLE INTAKE
     Route: 048
     Dates: start: 20160601, end: 20160601

REACTIONS (5)
  - Intentional overdose [Recovered/Resolved]
  - Disorientation [Recovered/Resolved]
  - Somnolence [Recovered/Resolved]
  - Toxicity to various agents [Recovered/Resolved]
  - Suicide attempt [Recovered/Resolved]

NARRATIVE: CASE EVENT DATE: 20160601
